FAERS Safety Report 16358783 (Version 2)
Quarter: 2019Q2

REPORT INFORMATION
  Report Type: Not Available
  Country: NL (occurrence: NL)
  Receive Date: 20190527
  Receipt Date: 20190610
  Transmission Date: 20190711
  Serious: Yes (Other)
  Sender: FDA-Public Use
  Company Number: NL-LEXICON PHARMACEUTICALS, INC-19-1606-00587

PATIENT
  Age: 62 Year
  Sex: Female

DRUGS (2)
  1. SOMATULINE AUTOSOLUTION [Suspect]
     Active Substance: LANREOTIDE ACETATE
     Indication: NEUROENDOCRINE TUMOUR
     Route: 058
     Dates: start: 20110530
  2. TELOTRISTAT ETHYL [Suspect]
     Active Substance: TELOTRISTAT ETHYL
     Indication: NEUROENDOCRINE TUMOUR
     Route: 048

REACTIONS (3)
  - Altered state of consciousness [Recovered/Resolved]
  - Constipation [Recovered/Resolved]
  - Off label use [None]

NARRATIVE: CASE EVENT DATE: 20190508
